FAERS Safety Report 9250933 (Version 1)
Quarter: 2013Q2

REPORT INFORMATION
  Report Type: Report from Study
  Country: CA (occurrence: CA)
  Receive Date: 20130424
  Receipt Date: 20130424
  Transmission Date: 20140414
  Serious: Yes (Death)
  Sender: FDA-Public Use
  Company Number: PHHY2013CA032836

PATIENT
  Age: 62 Year
  Sex: Male

DRUGS (1)
  1. SANDOSTATIN LAR [Suspect]
     Indication: METASTATIC GASTRIC CANCER
     Dosage: 30 MG, EVERY 4 WEEKS
     Route: 030
     Dates: start: 20130307, end: 20130307

REACTIONS (8)
  - Death [Fatal]
  - Musculoskeletal pain [Recovering/Resolving]
  - Pain in extremity [Recovering/Resolving]
  - Gait disturbance [Unknown]
  - Movement disorder [Unknown]
  - Weight decreased [Unknown]
  - Injection site pain [Unknown]
  - Hypophagia [Unknown]
